FAERS Safety Report 16787873 (Version 1)
Quarter: 2019Q3

REPORT INFORMATION
  Report Type: Spontaneous
  Country: US (occurrence: US)
  Receive Date: 20190909
  Receipt Date: 20190909
  Transmission Date: 20191005
  Serious: Yes (Life-Threatening, Hospitalization)
  Sender: FDA-Public Use
  Company Number: US-GE HEALTHCARE LIFE SCIENCES-2019CSU004537

PATIENT
  Age: 68 Year
  Sex: Female

DRUGS (2)
  1. OMNISCAN [Suspect]
     Active Substance: GADODIAMIDE
     Indication: IMAGING PROCEDURE
     Dosage: 1 ML, WAS INJECTED INTO THE ACCESSORY PORT; SINGLE
     Route: 037
  2. OMNISCAN [Suspect]
     Active Substance: GADODIAMIDE
     Indication: DEVICE MALFUNCTION

REACTIONS (2)
  - Contrast encephalopathy [Recovered/Resolved]
  - Off label use [Recovered/Resolved]
